FAERS Safety Report 7991302-0 (Version None)
Quarter: 2011Q4

REPORT INFORMATION
  Report Type: 
  Country: None (occurrence: None)
  Receive Date: 20111219
  Receipt Date: 20111207
  Transmission Date: 20120403
  Serious: Yes (Other)
  Sender: FDA-Public Use
  Company Number: US-ELI_LILLY_AND_COMPANY-US201112002493

PATIENT
  Age: 79 Year
  Sex: Female

DRUGS (10)
  1. HUMALOG MIX 75/25 [Suspect]
     Dosage: 15 U, EACH EVENING
  2. HUMULIN N [Suspect]
     Dosage: 32 U, EACH EVENING
     Dates: start: 20030101
  3. HUMULIN N [Suspect]
     Dosage: 25 U, EACH EVENING
  4. HUMALOG MIX 75/25 [Suspect]
     Dosage: 15 U, EACH EVENING
  5. HUMALOG MIX 75/25 [Suspect]
     Dosage: 15 U, EACH MORNING
  6. LASIX [Concomitant]
  7. HUMULIN N [Suspect]
     Indication: DIABETES MELLITUS
     Dosage: 32 U, EACH EVENING
     Dates: start: 20030101
  8. HUMALOG MIX 75/25 [Suspect]
     Indication: DIABETES MELLITUS
     Dosage: 15 U, EACH MORNING
  9. HUMULIN N [Suspect]
     Dosage: 25 U, EACH EVENING
  10. ANTIHYPERTENSIVES [Concomitant]
     Indication: HYPERTENSION
     Dosage: UNK

REACTIONS (5)
  - ARTHRITIS [None]
  - CARDIAC VALVE DISEASE [None]
  - DEHYDRATION [None]
  - FALL [None]
  - BLOOD GLUCOSE DECREASED [None]
